APPROVED DRUG PRODUCT: MIVACURIUM CHLORIDE
Active Ingredient: MIVACURIUM CHLORIDE
Strength: EQ 2MG BASE/ML
Dosage Form/Route: INJECTABLE;INJECTION
Application: A078562 | Product #001
Applicant: RISING PHARMA HOLDING INC
Approved: Apr 30, 2009 | RLD: No | RS: No | Type: DISCN